FAERS Safety Report 7644322-X (Version None)
Quarter: 2011Q3

REPORT INFORMATION
  Report Type: 
  Country: None (occurrence: None)
  Receive Date: 20110729
  Receipt Date: 20110720
  Transmission Date: 20111222
  Serious: Yes (Other)
  Sender: FDA-Public Use
  Company Number: US-ASTRAZENECA-2010SE18611

PATIENT
  Age: 83 Year
  Sex: Male

DRUGS (4)
  1. NEXIUM [Suspect]
     Route: 048
  2. PULMICORT FLEXHALER [Suspect]
     Route: 055
  3. DIOVAN [Concomitant]
  4. VERAPAMIL [Concomitant]

REACTIONS (4)
  - DYSPEPSIA [None]
  - GLAUCOMA [None]
  - GLAUCOMA SURGERY [None]
  - VISUAL IMPAIRMENT [None]
